FAERS Safety Report 10248616 (Version 4)
Quarter: 2024Q4

REPORT INFORMATION
  Report Type: Spontaneous
  Country: ES (occurrence: ES)
  Receive Date: 20140620
  Receipt Date: 20241118
  Transmission Date: 20250115
  Serious: Yes (Life-Threatening, Hospitalization, Other)
  Sender: NOVARTIS
  Company Number: PHHY2014ES075820

PATIENT
  Age: 39 Year
  Sex: Male

DRUGS (1)
  1. GILENYA [Suspect]
     Active Substance: FINGOLIMOD HYDROCHLORIDE
     Indication: Relapsing-remitting multiple sclerosis
     Dosage: UNK UKN, QD (28 C?PSULAS)
     Route: 048
     Dates: start: 201209, end: 201405

REACTIONS (6)
  - Acute coronary syndrome [Not Recovered/Not Resolved]
  - Chest pain [Unknown]
  - Acute myocardial infarction [Not Recovered/Not Resolved]
  - Chest discomfort [Unknown]
  - Pain in jaw [Unknown]
  - Muscular weakness [Unknown]

NARRATIVE: CASE EVENT DATE: 20140101
